FAERS Safety Report 18059276 (Version 1)
Quarter: 2020Q3

REPORT INFORMATION
  Report Type: Spontaneous
  Country: US (occurrence: US)
  Receive Date: 20200722
  Receipt Date: 20200722
  Transmission Date: 20201103
  Serious: Yes (Hospitalization)
  Sender: FDA-Public Use
  Company Number: None

PATIENT
  Sex: Female

DRUGS (6)
  1. CLOPIDOGREL [Concomitant]
     Active Substance: CLOPIDOGREL BISULFATE
  2. EAGLE BRAND MENTHOLATED LOTION [Suspect]
     Active Substance: MENTHOL\METHYL SALICYLATE
     Indication: BACTERIAL INFECTION
  3. CARVEDILOL. [Concomitant]
     Active Substance: CARVEDILOL
  4. AMLODIPINE [Concomitant]
     Active Substance: AMLODIPINE BESYLATE
  5. DULOXETINE. [Concomitant]
     Active Substance: DULOXETINE
  6. COSENTYX [Concomitant]
     Active Substance: SECUKINUMAB

REACTIONS (2)
  - Product dose omission issue [None]
  - Bacterial infection [None]
